FAERS Safety Report 11314347 (Version 4)
Quarter: 2015Q3

REPORT INFORMATION
  Report Type: Spontaneous
  Country: FR (occurrence: FR)
  Receive Date: 20150727
  Receipt Date: 20150821
  Transmission Date: 20151125
  Serious: Yes (Hospitalization)
  Sender: FDA-Public Use
  Company Number: FR-PFIZER INC-2015240679

PATIENT
  Age: 54 Year
  Sex: Male

DRUGS (9)
  1. TRAMADOL. [Concomitant]
     Active Substance: TRAMADOL
     Dosage: UNK
     Route: 048
     Dates: start: 20150706
  2. ZOPHREN /00955301/ [Concomitant]
     Active Substance: ONDANSETRON
     Dosage: 8 MG, 1X/DAY
     Route: 042
     Dates: start: 20150706, end: 20150709
  3. PRIMPERAN [Concomitant]
     Active Substance: METOCLOPRAMIDE HYDROCHLORIDE
     Dosage: 30 MG, 1X/DAY
     Route: 042
     Dates: start: 20150706, end: 20150709
  4. PARACETAMOL [Concomitant]
     Active Substance: ACETAMINOPHEN
     Dosage: UNK
     Route: 048
     Dates: start: 20150706
  5. IFOSFAMIDE EG [Suspect]
     Active Substance: IFOSFAMIDE
     Dosage: 3000 MG/M2, UNK
     Route: 042
     Dates: start: 20150706, end: 20150707
  6. UROMITEXAN [Suspect]
     Active Substance: MESNA
     Dosage: 7200 MG, DAILY
     Route: 042
     Dates: start: 20150706, end: 20150707
  7. EMEND [Concomitant]
     Active Substance: APREPITANT
     Dosage: 80 MG, 1X/DAY
     Route: 048
     Dates: start: 20150706, end: 20150709
  8. ADRIBLASTINE [Suspect]
     Active Substance: DOXORUBICIN
     Dosage: 60 MG/M2, UNK
     Route: 042
     Dates: start: 20150706, end: 20150706
  9. SOLU-MEDROL [Concomitant]
     Active Substance: METHYLPREDNISOLONE SODIUM SUCCINATE
     Dosage: 80 MG, 1X/DAY
     Route: 048
     Dates: start: 20150706, end: 20150709

REACTIONS (1)
  - Toxic encephalopathy [Recovering/Resolving]

NARRATIVE: CASE EVENT DATE: 20150708
